FAERS Safety Report 4862460-1 (Version None)
Quarter: 2005Q4

REPORT INFORMATION
  Report Type: 
  Country: None (occurrence: None)
  Receive Date: 20051221
  Receipt Date: 20030416
  Transmission Date: 20060501
  Serious: Yes (Hospitalization, Other)
  Sender: FDA-Public Use
  Company Number: US-BRISTOL-MYERS SQUIBB COMPANY-12244463

PATIENT
  Age: 55 Year
  Sex: Female
  Weight: 72 kg

DRUGS (7)
  1. TEQUIN [Suspect]
     Indication: BRONCHITIS
     Route: 048
     Dates: start: 20030413, end: 20030413
  2. LOPRESSOR [Concomitant]
  3. LIPITOR [Concomitant]
  4. TYLENOL [Concomitant]
     Route: 048
  5. CODEINE [Concomitant]
  6. SERAX [Concomitant]
     Indication: INSOMNIA
     Route: 048
  7. VENTOLIN [Concomitant]
     Route: 055

REACTIONS (10)
  - ATRIOVENTRICULAR BLOCK COMPLETE [None]
  - DIZZINESS [None]
  - ELECTROCARDIOGRAM T WAVE INVERSION [None]
  - ERYTHEMA [None]
  - HYPERGLYCAEMIA [None]
  - HYPERSENSITIVITY [None]
  - LOSS OF CONSCIOUSNESS [None]
  - NAUSEA [None]
  - TACHYCARDIA [None]
  - VOMITING [None]
